FAERS Safety Report 8443104-9 (Version None)
Quarter: 2012Q2

REPORT INFORMATION
  Report Type: 
  Country: None (occurrence: None)
  Receive Date: 20120615
  Receipt Date: 20120315
  Transmission Date: 20120825
  Serious: Yes (Life-Threatening, Hospitalization)
  Sender: FDA-Public Use
  Company Number: FR-BAXTER-2012BAX000054

PATIENT
  Sex: Male

DRUGS (3)
  1. EPIRUBICIN [Suspect]
     Route: 064
     Dates: start: 20070101, end: 20070101
  2. CYCLOPHOSPHAMIDE [Suspect]
     Route: 064
     Dates: start: 20070101, end: 20070101
  3. FLUOROURACIL [Suspect]
     Route: 064
     Dates: start: 20070101, end: 20070101

REACTIONS (2)
  - NEUROBLASTOMA [None]
  - METASTASES TO ADRENALS [None]
